FAERS Safety Report 7204501-2 (Version None)
Quarter: 2010Q4

REPORT INFORMATION
  Report Type: 
  Country: None (occurrence: None)
  Receive Date: 20101230
  Receipt Date: 20101222
  Transmission Date: 20110411
  Serious: Yes (Other)
  Sender: FDA-Public Use
  Company Number: ZA-JNJFOC-20101203074

PATIENT
  Sex: Male
  Weight: 53 kg

DRUGS (4)
  1. REVELLEX [Suspect]
     Indication: CROHN'S DISEASE
     Route: 042
  2. REVELLEX [Suspect]
     Route: 042
  3. AZAPRESS [Concomitant]
     Indication: CROHN'S DISEASE
  4. PENTASA [Concomitant]
     Indication: CROHN'S DISEASE

REACTIONS (1)
  - DISSEMINATED TUBERCULOSIS [None]
